FAERS Safety Report 6610744-9 (Version None)
Quarter: 2010Q1

REPORT INFORMATION
  Report Type: 
  Country: None (occurrence: None)
  Receive Date: 20100302
  Receipt Date: 20100219
  Transmission Date: 20100710
  Serious: Yes (Other)
  Sender: FDA-Public Use
  Company Number: B0605858A

PATIENT
  Age: 1 Year
  Sex: Female

DRUGS (4)
  1. AMOXICILLIN AND CLAVULANATE POTASSIUM [Suspect]
     Indication: DRUG USE FOR UNKNOWN INDICATION
     Route: 048
     Dates: start: 20091107
  2. FLOMOX [Concomitant]
     Route: 048
     Dates: start: 20091101
  3. UNKNOWN DRUG [Concomitant]
     Dates: start: 20091101
  4. KLARICID [Concomitant]
     Route: 048
     Dates: start: 20091101

REACTIONS (1)
  - ERYTHEMA MULTIFORME [None]
